FAERS Safety Report 24099836 (Version 1)
Quarter: 2024Q3

REPORT INFORMATION
  Report Type: Report from Study
  Country: CA (occurrence: CA)
  Receive Date: 20240716
  Receipt Date: 20240716
  Transmission Date: 20241016
  Serious: Yes (Other)
  Sender: ABBVIE
  Company Number: CA-ABBVIE-5838546

PATIENT
  Sex: Male

DRUGS (1)
  1. SKYRIZI [Suspect]
     Active Substance: RISANKIZUMAB-RZAA
     Indication: Crohn^s disease
     Route: 058
     Dates: start: 20230606

REACTIONS (5)
  - Surgery [Unknown]
  - Diarrhoea [Unknown]
  - Adverse food reaction [Unknown]
  - Arthralgia [Not Recovered/Not Resolved]
  - Incision site swelling [Unknown]

NARRATIVE: CASE EVENT DATE: 20240710
